FAERS Safety Report 14447784 (Version 1)
Quarter: 2018Q1

REPORT INFORMATION
  Report Type: Report from Study
  Country: None (occurrence: AR)
  Receive Date: 20180126
  Receipt Date: 20180126
  Transmission Date: 20180509
  Serious: Yes (Hospitalization)
  Sender: FDA-Public Use
  Company Number: AR-ABBVIE-18S-007-2237304-00

PATIENT
  Age: 73 Year
  Sex: Female

DRUGS (1)
  1. ZEMPLAR [Suspect]
     Active Substance: PARICALCITOL
     Indication: HYPERPARATHYROIDISM SECONDARY
     Route: 042
     Dates: start: 20160210

REACTIONS (3)
  - Hiatus hernia [Recovering/Resolving]
  - Abdominal pain upper [Unknown]
  - Oesophagitis [Unknown]

NARRATIVE: CASE EVENT DATE: 20171223
